FAERS Safety Report 4995481-9 (Version None)
Quarter: 2006Q2

REPORT INFORMATION
  Report Type: 
  Country: None (occurrence: None)
  Receive Date: 20060504
  Receipt Date: 20060418
  Transmission Date: 20061013
  Serious: Yes (Death)
  Sender: FDA-Public Use
  Company Number: 139072USA

PATIENT
  Age: 22 Year
  Sex: Female

DRUGS (1)
  1. PURINETHOL [Suspect]
     Dates: start: 19901101, end: 19930301

REACTIONS (1)
  - WHITE BLOOD CELL COUNT DECREASED [None]
